FAERS Safety Report 9269733 (Version 3)
Quarter: 2013Q3

REPORT INFORMATION
  Report Type: Spontaneous
  Country: JP (occurrence: JP)
  Receive Date: 20130503
  Receipt Date: 20130708
  Transmission Date: 20140515
  Serious: Yes (Hospitalization, Other)
  Sender: FDA-Public Use
  Company Number: PHHY2013JP032767

PATIENT
  Age: 64 Year
  Sex: Female
  Weight: 30 kg

DRUGS (4)
  1. EXELON PATCH [Suspect]
     Indication: DEMENTIA ALZHEIMER^S TYPE
     Dosage: UNK UKN, UNK
     Route: 062
     Dates: start: 20121022
  2. EXELON PATCH [Suspect]
     Dosage: 9 MG, DAILY
     Route: 062
  3. MENESIT [Suspect]
     Indication: PARKINSONISM
     Dosage: 300 MG, DAILY
     Route: 048
     Dates: start: 20120423, end: 20130225
  4. METGLUCO [Concomitant]
     Indication: DIABETES MELLITUS
     Dosage: 500 MG, UNK
     Route: 048
     Dates: start: 20110620, end: 201304

REACTIONS (5)
  - Pneumonia aspiration [Not Recovered/Not Resolved]
  - Hepatic function abnormal [Unknown]
  - Blood cholinesterase decreased [Not Recovered/Not Resolved]
  - Hypophagia [Unknown]
  - Dysphagia [Unknown]
